FAERS Safety Report 9741737 (Version 2)
Quarter: 2015Q2

REPORT INFORMATION
  Report Type: Spontaneous
  Country: FR (occurrence: FR)
  Receive Date: 20131210
  Receipt Date: 20150415
  Transmission Date: 20150821
  Serious: Yes (Life-Threatening, Hospitalization)
  Sender: FDA-Public Use
  Company Number: FR-ROCHE-1312730

PATIENT
  Age: 71 Year
  Sex: Male

DRUGS (13)
  1. EXACYL [Concomitant]
     Active Substance: TRANEXAMIC ACID
     Dosage: ADMINISTERED FOR MONTH
     Route: 065
  2. LERCAN [Concomitant]
     Active Substance: LERCANIDIPINE
  3. TRIATEC (FRANCE) [Suspect]
     Active Substance: RAMIPRIL
     Route: 048
     Dates: start: 20121218, end: 20130801
  4. BACTRIM [Concomitant]
     Active Substance: SULFAMETHOXAZOLE\TRIMETHOPRIM
  5. NOVORAPID [Concomitant]
     Active Substance: INSULIN ASPART
     Indication: DIABETES MELLITUS
  6. LANTUS [Concomitant]
     Active Substance: INSULIN GLARGINE
     Indication: DIABETES MELLITUS
  7. APROVEL [Concomitant]
     Active Substance: IRBESARTAN
  8. CELLCEPT [Suspect]
     Active Substance: MYCOPHENOLATE MOFETIL\MYCOPHENOLATE MOFETIL HYDROCHLORIDE
     Indication: IMMUNOSUPPRESSION
     Route: 048
     Dates: start: 20110412
  9. TRANDATE [Concomitant]
     Active Substance: LABETALOL HYDROCHLORIDE
     Route: 065
     Dates: end: 201203
  10. TRIATEC (FRANCE) [Suspect]
     Active Substance: RAMIPRIL
     Indication: HYPERTENSION
     Route: 048
     Dates: start: 20111016
  11. TRIATEC (FRANCE) [Suspect]
     Active Substance: RAMIPRIL
     Dosage: MONTHLY ADMINISTERED
     Route: 048
     Dates: start: 20131230
  12. KARDEGIC [Concomitant]
     Active Substance: ASPIRIN LYSINE
  13. CERTICAN [Concomitant]
     Active Substance: EVEROLIMUS
     Indication: CYTOMEGALOVIRUS INFECTION

REACTIONS (1)
  - Angioedema [Recovered/Resolved]

NARRATIVE: CASE EVENT DATE: 201201
